FAERS Safety Report 7752528-4 (Version None)
Quarter: 2011Q3

REPORT INFORMATION
  Report Type: 
  Country: None (occurrence: None)
  Receive Date: 20110915
  Receipt Date: 20110906
  Transmission Date: 20111222
  Serious: Yes (Hospitalization)
  Sender: FDA-Public Use
  Company Number: GB-MPIJNJ-2008-01780

PATIENT

DRUGS (3)
  1. IDARUBICIN HCL [Suspect]
     Indication: MULTIPLE MYELOMA
     Dosage: 5 MG/M2, UNK
     Route: 048
     Dates: start: 20080516, end: 20080520
  2. VELCADE [Suspect]
     Indication: MULTIPLE MYELOMA
     Dosage: 1.3 MG/M2, UNK
     Route: 042
     Dates: start: 20080513, end: 20080520
  3. MELPHALAN [Suspect]
     Indication: MULTIPLE MYELOMA
     Dosage: 15 MG/M2, UNK
     Route: 042
     Dates: start: 20080516, end: 20080520

REACTIONS (4)
  - HYPOTENSION [None]
  - CIRCULATORY COLLAPSE [None]
  - DIARRHOEA [None]
  - DEHYDRATION [None]
